FAERS Safety Report 8409685-6 (Version None)
Quarter: 2012Q2

REPORT INFORMATION
  Report Type: 
  Country: None (occurrence: None)
  Receive Date: 20120529
  Receipt Date: 20120518
  Transmission Date: 20120825
  Serious: Yes (Disabling, Other)
  Sender: FDA-Public Use
  Company Number: ACO_30446_2012

PATIENT
  Age: 76 Year
  Sex: Male
  Weight: 77.1 kg

DRUGS (4)
  1. LIPID MODIFYING AGENTS [Concomitant]
  2. VITAMINS NOS (VITAMINS NOS) [Concomitant]
  3. AMPYRA [Suspect]
     Indication: GAIT DISTURBANCE
     Dosage: 10 MG, BID, ORAL; 10 MG, BID, ORAL
     Route: 048
     Dates: start: 20110101
  4. AMPYRA [Suspect]
     Indication: GAIT DISTURBANCE
     Dosage: 10 MG, BID, ORAL; 10 MG, BID, ORAL
     Route: 048
     Dates: start: 20110101, end: 20110101

REACTIONS (1)
  - DRUG DOSE OMISSION [None]
